FAERS Safety Report 20652539 (Version 1)
Quarter: 2022Q1

REPORT INFORMATION
  Report Type: Spontaneous
  Country: DE (occurrence: DE)
  Receive Date: 20220330
  Receipt Date: 20220330
  Transmission Date: 20220423
  Serious: Yes (Other)
  Sender: FDA-Public Use
  Company Number: DE-BRISTOL-MYERS SQUIBB COMPANY-2022-012694

PATIENT
  Sex: Female

DRUGS (3)
  1. NIVOLUMAB [Suspect]
     Active Substance: NIVOLUMAB
     Indication: Metastatic malignant melanoma
     Dosage: DOSE : 480 MG;     FREQ : EVERY 4 WEEKS
     Route: 065
  2. IPILIMUMAB [Suspect]
     Active Substance: IPILIMUMAB
     Indication: Metastatic malignant melanoma
     Route: 065
  3. NIVOLUMAB\RELATLIMAB-RMBW [Suspect]
     Active Substance: NIVOLUMAB\RELATLIMAB-RMBW
     Indication: Metastatic malignant melanoma
     Route: 065

REACTIONS (13)
  - Pruritus [Unknown]
  - Fatigue [Unknown]
  - Rash [Unknown]
  - Arthralgia [Unknown]
  - Hypothyroidism [Unknown]
  - Diarrhoea [Unknown]
  - Vitiligo [Unknown]
  - Haemophagocytic lymphohistiocytosis [Unknown]
  - Acute pulmonary oedema [Unknown]
  - Pneumonitis [Unknown]
  - Sepsis [Unknown]
  - Myocarditis [Unknown]
  - Pneumonia [Unknown]
